FAERS Safety Report 11613069 (Version 1)
Quarter: 2015Q4

REPORT INFORMATION
  Report Type: Spontaneous
  Country: US (occurrence: US)
  Receive Date: 20151008
  Receipt Date: 20151008
  Transmission Date: 20160304
  Serious: No
  Sender: FDA-Public Use
  Company Number: US-JNJFOC-20150821493

PATIENT
  Age: 75 Year
  Sex: Male
  Weight: 102.97 kg

DRUGS (16)
  1. BENEFIBER [Concomitant]
     Active Substance: STARCH, WHEAT
     Indication: PRODUCT USED FOR UNKNOWN INDICATION
     Dosage: 1 TABLESPOON, YEARS
     Route: 065
  2. AMLODIPINE [Concomitant]
     Active Substance: AMLODIPINE BESYLATE
     Indication: PRODUCT USED FOR UNKNOWN INDICATION
     Dosage: YEARS
     Route: 065
  3. MINOCYCLINE\MINOCYCLINE HYDROCHLORIDE [Concomitant]
     Active Substance: MINOCYCLINE\MINOCYCLINE HYDROCHLORIDE
     Indication: ANTIBIOTIC THERAPY
     Route: 065
     Dates: start: 20150817
  4. VITAMIN D3 [Concomitant]
     Active Substance: CHOLECALCIFEROL
     Indication: PRODUCT USED FOR UNKNOWN INDICATION
     Dosage: YEARS
     Route: 065
  5. KIONEX [Concomitant]
     Active Substance: SODIUM POLYSTYRENE SULFONATE
     Indication: RENAL DISORDER
     Dosage: 4 TABLESPOONS, YEARS
     Route: 065
  6. IMODIUM MULTI-SYMPTOM RELIEF [Suspect]
     Active Substance: DIMETHICONE\LOPERAMIDE HYDROCHLORIDE
     Route: 048
  7. BABY ASPIRIN [Concomitant]
     Active Substance: ASPIRIN
     Indication: ANTICOAGULANT THERAPY
     Dosage: YEARS
     Route: 065
  8. CALCITRIOL. [Concomitant]
     Active Substance: CALCITRIOL
     Indication: RENAL DISORDER
     Dosage: YEARS
     Route: 065
  9. LANTUS SOLOSTAR [Concomitant]
     Active Substance: INSULIN GLARGINE
     Indication: DIABETES MELLITUS
     Dosage: YEARS
     Route: 065
  10. FUROSEMIDE. [Concomitant]
     Active Substance: FUROSEMIDE
     Indication: DIURETIC THERAPY
     Dosage: YEARS
     Route: 065
  11. METOPROLOL [Concomitant]
     Active Substance: METOPROLOL
     Indication: PRODUCT USED FOR UNKNOWN INDICATION
     Dosage: YEARS
     Route: 065
  12. IMODIUM MULTI-SYMPTOM RELIEF [Suspect]
     Active Substance: DIMETHICONE\LOPERAMIDE HYDROCHLORIDE
     Indication: DIARRHOEA
     Dosage: ONE TIME
     Route: 048
     Dates: start: 20150825, end: 20150825
  13. SIMVASTATIN. [Concomitant]
     Active Substance: SIMVASTATIN
     Indication: BLOOD CHOLESTEROL INCREASED
     Dosage: YEARS
     Route: 065
  14. SERTRALINE [Concomitant]
     Active Substance: SERTRALINE HYDROCHLORIDE
     Indication: PRODUCT USED FOR UNKNOWN INDICATION
     Route: 065
  15. VITAMIN C [Concomitant]
     Active Substance: ASCORBIC ACID
     Indication: PRODUCT USED FOR UNKNOWN INDICATION
     Dosage: YEARS
     Route: 065
  16. OMEPRAZOLE. [Concomitant]
     Active Substance: OMEPRAZOLE
     Indication: GASTROOESOPHAGEAL REFLUX DISEASE
     Dosage: YEARS
     Route: 065

REACTIONS (2)
  - Constipation [Unknown]
  - Infrequent bowel movements [Unknown]

NARRATIVE: CASE EVENT DATE: 20150826
